FAERS Safety Report 5137602-3 (Version None)
Quarter: 2006Q4

REPORT INFORMATION
  Report Type: 
  Country: None (occurrence: None)
  Receive Date: 20061030
  Receipt Date: 20051123
  Transmission Date: 20070319
  Serious: No
  Sender: FDA-Public Use
  Company Number: US-GLAXOSMITHKLINE-A0584152A

PATIENT
  Age: 64 Year
  Sex: Female

DRUGS (8)
  1. ADVAIR HFA [Suspect]
     Indication: ASTHMA
     Dosage: 1PUFF TWICE PER DAY
     Route: 055
     Dates: start: 20050101
  2. PROTONIX [Concomitant]
  3. PLAQUENIL [Concomitant]
  4. ACTOS [Concomitant]
  5. COZAAR [Concomitant]
  6. LIPITOR [Concomitant]
  7. AMBIEN [Concomitant]
  8. TYLENOL PM [Concomitant]

REACTIONS (1)
  - DYSGEUSIA [None]
